FAERS Safety Report 8798314 (Version 1)
Quarter: 2012Q4

REPORT INFORMATION
  Report Type: 
  Country: US (occurrence: US)
  Receive Date: 20120920
  Receipt Date: 20120920
  Transmission Date: 20130627
  Serious: No
  Sender: FDA-Public Use
  Company Number: US-009507513-1208USA005493

PATIENT
  Sex: Female

DRUGS (5)
  1. VICTRELIS [Suspect]
     Dosage: 800 mg, tid
     Route: 048
  2. PEGINTRON [Suspect]
     Dosage: 120 UNK, UNK
  3. RIBAPAK [Concomitant]
     Dosage: 800 mg, UNK
  4. CELEXA [Concomitant]
     Dosage: 40 mg, UNK
  5. MILK THISTLE [Concomitant]

REACTIONS (5)
  - Erythema [Unknown]
  - Injection site pruritus [Unknown]
  - Injection site erythema [Unknown]
  - Pigmentation disorder [Unknown]
  - Pruritus [Unknown]
